FAERS Safety Report 21147946 (Version 1)
Quarter: 2022Q3

REPORT INFORMATION
  Report Type: Spontaneous
  Country: US (occurrence: None)
  Receive Date: 20220729
  Receipt Date: 20220729
  Transmission Date: 20221026
  Serious: Yes (Disabling, Other)
  Sender: FDA-Public Use
  Company Number: None

PATIENT
  Age: 45 Year
  Sex: Female

DRUGS (3)
  1. CITROMA [Suspect]
     Active Substance: MAGNESIUM CITRATE
     Indication: Constipation
     Route: 048
     Dates: start: 20220510, end: 20220510
  2. LISINOPRIL [Concomitant]
     Active Substance: LISINOPRIL
  3. METFORMIN [Concomitant]
     Active Substance: METFORMIN HYDROCHLORIDE

REACTIONS (8)
  - Noninfective oophoritis [None]
  - Adnexal torsion [None]
  - Oophoritis [None]
  - Gait inability [None]
  - Abdominal pain lower [None]
  - Abdominal discomfort [None]
  - Abdominal distension [None]
  - Back pain [None]

NARRATIVE: CASE EVENT DATE: 20220510
